FAERS Safety Report 9894445 (Version 1)
Quarter: 2014Q1

REPORT INFORMATION
  Report Type: Report from Study
  Country: CA (occurrence: CA)
  Receive Date: 20140213
  Receipt Date: 20140213
  Transmission Date: 20141002
  Serious: Yes (Other)
  Sender: FDA-Public Use
  Company Number: CA-BRISTOL-MYERS SQUIBB COMPANY-20150017

PATIENT
  Age: 49 Year
  Sex: Female

DRUGS (6)
  1. ORENCIA [Suspect]
     Indication: RHEUMATOID ARTHRITIS
     Dosage: 1 DF=1000 NOS
     Dates: start: 20100311
  2. AMITRIPTYLINE [Concomitant]
  3. MELOXICAM [Concomitant]
  4. FOLIC ACID [Concomitant]
  5. TYLENOL [Concomitant]
  6. CORTISONE [Concomitant]
     Dosage: INJ

REACTIONS (1)
  - Trigger finger [Unknown]
